FAERS Safety Report 4752176-4 (Version None)
Quarter: 2005Q3

REPORT INFORMATION
  Report Type: 
  Country: None (occurrence: None)
  Receive Date: 20050824
  Receipt Date: 20050824
  Transmission Date: 20060218
  Serious: Yes (Other)
  Sender: FDA-Public Use
  Company Number: None

PATIENT
  Sex: Female
  Weight: 110.2241 kg

DRUGS (6)
  1. CADUET [Suspect]
     Indication: HYPERLIPIDAEMIA
     Dosage: ONE TABLET DAILY AT BEDTIME PO
     Route: 048
     Dates: start: 20050630, end: 20050803
  2. LISINOPRIL AND HYDROCHLOROTHIAZIDE [Concomitant]
  3. COREG [Concomitant]
  4. INSULIN [Concomitant]
  5. ASPIRIN [Concomitant]
  6. SPIRONOLACTONE [Concomitant]

REACTIONS (7)
  - ERYTHEMA [None]
  - GINGIVITIS [None]
  - OEDEMA [None]
  - PAIN IN EXTREMITY [None]
  - PRURITUS [None]
  - STOMATITIS [None]
  - SWELLING FACE [None]
